FAERS Safety Report 5150808-2 (Version None)
Quarter: 2006Q4

REPORT INFORMATION
  Report Type: 
  Country: None (occurrence: None)
  Receive Date: 20061108
  Receipt Date: 20061027
  Transmission Date: 20070319
  Serious: Yes (Hospitalization)
  Sender: FDA-Public Use
  Company Number: 2006-149626-NL

PATIENT
  Age: 19 Year
  Sex: Female

DRUGS (2)
  1. ETONOGESTREL [Suspect]
     Indication: CONTRACEPTION
     Dosage: DF; NI
     Dates: start: 20060531
  2. LAMOTRIGINE [Concomitant]

REACTIONS (1)
  - EPILEPSY [None]
